FAERS Safety Report 4430907-0 (Version None)
Quarter: 2004Q3

REPORT INFORMATION
  Report Type: 
  Country: None (occurrence: None)
  Receive Date: 20040823
  Receipt Date: 20040816
  Transmission Date: 20050211
  Serious: Yes (Hospitalization)
  Sender: FDA-Public Use
  Company Number: US-ROCHE-377911

PATIENT
  Age: 47 Year
  Sex: Female
  Weight: 93 kg

DRUGS (13)
  1. XENICAL [Suspect]
     Indication: DRUG USE FOR UNKNOWN INDICATION
     Route: 048
     Dates: start: 20020916
  2. LEVOXYL [Concomitant]
     Route: 048
  3. ZESTRIL [Concomitant]
     Route: 048
     Dates: end: 20031009
  4. LASIX [Concomitant]
     Route: 048
  5. K-DUR 10 [Concomitant]
     Route: 048
  6. B COMPLEX VITAMINS [Concomitant]
     Route: 048
  7. ZOLOFT [Concomitant]
     Route: 048
     Dates: start: 20030224, end: 20030315
  8. NEXIUM [Concomitant]
     Route: 048
  9. ADVICOR [Concomitant]
     Route: 048
     Dates: start: 20030215, end: 20040421
  10. UNKNOWN MEDICATION [Concomitant]
     Dosage: TRADE NAME REPORTED AS ALLERGA.
     Route: 048
     Dates: start: 20030224, end: 20040315
  11. ZYRTEC [Concomitant]
     Route: 048
     Dates: start: 20030421, end: 20040315
  12. LOTREL [Concomitant]
     Route: 048
     Dates: start: 20031009
  13. GUAIFENESIN + PSEUDOEPHEDRINE [Concomitant]
     Dosage: 1 DOSE FORM BID, PRN. TRADE NAME = AMBIFED-G
     Route: 048
     Dates: start: 20040315

REACTIONS (14)
  - ACUTE SINUSITIS [None]
  - CERUMEN IMPACTION [None]
  - EAR PAIN [None]
  - EYE PRURITUS [None]
  - GASTROOESOPHAGEAL REFLUX DISEASE [None]
  - HEADACHE [None]
  - HOARSENESS [None]
  - INSOMNIA [None]
  - PAIN IN JAW [None]
  - RASH [None]
  - SINUS CONGESTION [None]
  - UTERINE LEIOMYOMA [None]
  - VAGINAL HAEMORRHAGE [None]
  - VAGINITIS [None]
